FAERS Safety Report 26204628 (Version 1)
Quarter: 2025Q4

REPORT INFORMATION
  Report Type: Spontaneous
  Country: US (occurrence: US)
  Receive Date: 20251227
  Receipt Date: 20251227
  Transmission Date: 20260118
  Serious: No
  Sender: ALEXION PHARMACEUTICALS
  Company Number: US-AstraZeneca-CH-01020574A

PATIENT
  Age: 54 Year
  Sex: Male
  Weight: 104 kg

DRUGS (3)
  1. FARXIGA [Suspect]
     Active Substance: DAPAGLIFLOZIN PROPANEDIOL
     Indication: Diabetes mellitus
     Dosage: 10 MILLIGRAM, QD
     Route: 061
     Dates: start: 20251221
  2. MOUNJARO [Concomitant]
     Active Substance: TIRZEPATIDE
     Route: 065
  3. VITAMINS [Concomitant]
     Active Substance: VITAMINS
     Route: 065

REACTIONS (1)
  - Erection increased [Unknown]

NARRATIVE: CASE EVENT DATE: 20251221
